FAERS Safety Report 7378282-6 (Version None)
Quarter: 2011Q1

REPORT INFORMATION
  Report Type: 
  Country: None (occurrence: None)
  Receive Date: 20110317
  Receipt Date: 20110307
  Transmission Date: 20110831
  Serious: Yes (Hospitalization)
  Sender: FDA-Public Use
  Company Number: UTC-005572

PATIENT
  Age: 45 Year
  Sex: Male

DRUGS (1)
  1. REMODULIN [Suspect]
     Dosage: 132.48 UG/KG (0.092 UG/KG,1 IN 1 MIN),INTRAVENOUS
     Route: 042

REACTIONS (1)
  - FLUID RETENTION [None]
